FAERS Safety Report 14837859 (Version 1)
Quarter: 2018Q2

REPORT INFORMATION
  Report Type: Spontaneous
  Country: KR (occurrence: KR)
  Receive Date: 20180502
  Receipt Date: 20180502
  Transmission Date: 20180711
  Serious: Yes (Hospitalization)
  Sender: FDA-Public Use
  Company Number: KR-SHENZHEN TECHDOW PHARMACEUTICAL CO. LTD-KR-2018TEC0000020

PATIENT
  Age: 84 Year
  Sex: Female

DRUGS (2)
  1. WARFARIN [Suspect]
     Active Substance: WARFARIN
     Indication: PULMONARY EMBOLISM
     Dosage: UNK
  2. HEPARIN SODIUM INJECTION USP, PRESERVATIVE FREE [Suspect]
     Active Substance: HEPARIN SODIUM
     Indication: PULMONARY EMBOLISM
     Dosage: UNK

REACTIONS (1)
  - Abdominal wall haematoma [Recovered/Resolved]
